FAERS Safety Report 16127900 (Version 1)
Quarter: 2019Q1

REPORT INFORMATION
  Report Type: Spontaneous
  Country: US (occurrence: US)
  Receive Date: 20190328
  Receipt Date: 20190328
  Transmission Date: 20190418
  Serious: No
  Sender: FDA-Public Use
  Company Number: US-BAYER-2019-059353

PATIENT
  Age: 75 Year
  Sex: Female
  Weight: 91 kg

DRUGS (2)
  1. MIRALAX [Suspect]
     Active Substance: POLYETHYLENE GLYCOL 3350
     Indication: DIARRHOEA
     Route: 048
     Dates: start: 20190324, end: 20190324
  2. MIRALAX [Suspect]
     Active Substance: POLYETHYLENE GLYCOL 3350
     Indication: DIARRHOEA
     Dosage: UNK
     Dates: start: 20190325, end: 20190325

REACTIONS (4)
  - Product use issue [Unknown]
  - Off label use [None]
  - Product taste abnormal [Unknown]
  - Product use in unapproved indication [Unknown]
